FAERS Safety Report 9549349 (Version 2)
Quarter: 2013Q3

REPORT INFORMATION
  Report Type: Spontaneous
  Country: PL (occurrence: PL)
  Receive Date: 20130924
  Receipt Date: 20130926
  Transmission Date: 20140515
  Serious: Yes (Life-Threatening, Hospitalization, Other)
  Sender: FDA-Public Use
  Company Number: PL-MERCK-1309POL009607

PATIENT
  Age: 59 Year
  Sex: Female

DRUGS (6)
  1. PEGINTRON [Suspect]
     Indication: HEPATITIS C
     Dosage: 120 MCG PER WEEK
     Route: 058
     Dates: start: 20130729, end: 20130906
  2. PEGINTRON [Suspect]
     Indication: HEPATITIS C
     Dosage: UNK, QW
     Route: 058
     Dates: start: 20130916
  3. VICTRELIS [Suspect]
     Indication: HEPATITIS C
     Dosage: 800 MG, TID
     Route: 048
     Dates: start: 20130826
  4. REBETOL [Suspect]
     Indication: HEPATITIS C
     Dosage: 1200 MG A DAY
     Route: 048
     Dates: start: 20130729
  5. ATENOLOL [Concomitant]
     Dosage: 25 MG, BID
     Dates: start: 2000
  6. LOSARTAN POTASSIUM [Concomitant]
     Dosage: 50 MG, UNK
     Dates: start: 2000

REACTIONS (6)
  - Granulocytopenia [Recovered/Resolved]
  - Nausea [Recovered/Resolved]
  - Vomiting [Recovered/Resolved]
  - Asthenia [Recovered/Resolved]
  - Malaise [Recovered/Resolved]
  - Streptococcal infection [Unknown]
